FAERS Safety Report 25201058 (Version 1)
Quarter: 2025Q2

REPORT INFORMATION
  Report Type: Spontaneous
  Country: FR (occurrence: FR)
  Receive Date: 20250416
  Receipt Date: 20250416
  Transmission Date: 20250717
  Serious: Yes (Other)
  Sender: AUROBINDO
  Company Number: FR-AUROBINDO-AUR-APL-2025-019234

PATIENT
  Age: 50 Year
  Sex: Male

DRUGS (11)
  1. LOSARTAN [Suspect]
     Active Substance: LOSARTAN
     Indication: Scleroderma
     Dosage: 50 MILLIGRAM, ONCE A DAY
     Route: 065
  2. LOSARTAN [Suspect]
     Active Substance: LOSARTAN
     Indication: Calcinosis
  3. OMEPRAZOLE [Suspect]
     Active Substance: OMEPRAZOLE
     Indication: Scleroderma
     Dosage: 20 MILLIGRAM, ONCE A DAY
     Route: 065
  4. OMEPRAZOLE [Suspect]
     Active Substance: OMEPRAZOLE
     Indication: Calcinosis
  5. SILDENAFIL [Suspect]
     Active Substance: SILDENAFIL
     Indication: Erectile dysfunction
     Route: 065
  6. VERAPAMIL [Suspect]
     Active Substance: VERAPAMIL HYDROCHLORIDE
     Indication: Scleroderma
     Dosage: 240 MILLIGRAM, ONCE A DAY
     Route: 065
  7. VERAPAMIL [Suspect]
     Active Substance: VERAPAMIL HYDROCHLORIDE
     Indication: Calcinosis
  8. MINOCYCLINE [Suspect]
     Active Substance: MINOCYCLINE HYDROCHLORIDE
     Indication: Scleroderma
     Route: 065
  9. MINOCYCLINE [Suspect]
     Active Substance: MINOCYCLINE HYDROCHLORIDE
     Indication: Calcinosis
  10. MINOCYCLINE [Suspect]
     Active Substance: MINOCYCLINE HYDROCHLORIDE
     Indication: Erectile dysfunction
  11. CYCLOSPORINE [Concomitant]
     Active Substance: CYCLOSPORINE
     Indication: Ankylosing spondylitis
     Route: 065
     Dates: start: 1998

REACTIONS (1)
  - Drug ineffective [Unknown]
